FAERS Safety Report 12610085 (Version 2)
Quarter: 2016Q4

REPORT INFORMATION
  Report Type: Spontaneous
  Country: US (occurrence: US)
  Receive Date: 20160801
  Receipt Date: 20161020
  Transmission Date: 20170207
  Serious: Yes (Congenital Anomaly, Other)
  Sender: FDA-Public Use
  Company Number: PHEH2016US019036

PATIENT

DRUGS (1)
  1. ZOFRAN ODT [Suspect]
     Active Substance: ONDANSETRON HYDROCHLORIDE
     Indication: FOETAL EXPOSURE DURING PREGNANCY
     Route: 064

REACTIONS (12)
  - Oligohydramnios [Unknown]
  - Brachycephaly [Unknown]
  - Bone disorder [Unknown]
  - Failure to thrive [Unknown]
  - Foetal exposure during pregnancy [Unknown]
  - Emotional distress [Unknown]
  - Micrognathia [Unknown]
  - Retrognathia [Unknown]
  - Dysmorphism [Unknown]
  - Congenital hand malformation [Unknown]
  - Injury [Unknown]
  - Pierre Robin syndrome [Unknown]
